FAERS Safety Report 23881256 (Version 1)
Quarter: 2024Q2

REPORT INFORMATION
  Report Type: Spontaneous
  Country: US (occurrence: US)
  Receive Date: 20240521
  Receipt Date: 20240521
  Transmission Date: 20240716
  Serious: Yes (Death, Hospitalization, Other)
  Sender: FDA-Public Use
  Company Number: US-SUN PHARMACEUTICAL INDUSTRIES LTD-2024R1-446641

PATIENT
  Age: 78 Year
  Sex: Male

DRUGS (2)
  1. DOCETAXEL [Suspect]
     Active Substance: DOCETAXEL\DOCETAXEL ANHYDROUS
     Indication: Malignant ascites
     Dosage: 75 MILLIGRAM/SQ. METER, EVERY 21 DAYS
     Route: 042
  2. DOCETAXEL [Suspect]
     Active Substance: DOCETAXEL\DOCETAXEL ANHYDROUS
     Dosage: 37.5 MILLIGRAM/SQ. METER
     Route: 042

REACTIONS (11)
  - Condition aggravated [Unknown]
  - Obstructive shock [Fatal]
  - Pulmonary embolism [Unknown]
  - Disease recurrence [Unknown]
  - Hydronephrosis [Unknown]
  - Renal failure [Unknown]
  - Fatigue [Unknown]
  - Encephalopathy [Unknown]
  - Tumour lysis syndrome [Unknown]
  - Acute kidney injury [Unknown]
  - Escherichia bacteraemia [Unknown]
